FAERS Safety Report 7814192-5 (Version None)
Quarter: 2011Q4

REPORT INFORMATION
  Report Type: 
  Country: None (occurrence: None)
  Receive Date: 20111014
  Receipt Date: 20111004
  Transmission Date: 20120403
  Serious: Yes (Death)
  Sender: FDA-Public Use
  Company Number: JP-SANOFI-AVENTIS-200713549JP

PATIENT
  Age: 79 Year
  Sex: Male
  Weight: 54 kg

DRUGS (27)
  1. TAXOTERE [Suspect]
     Route: 041
     Dates: start: 20071101, end: 20071101
  2. ESTRACYT [Suspect]
     Route: 065
     Dates: start: 20071031, end: 20071104
  3. CITRIC ACID AND SODIUM CITRATE AND SODIUM PHOSPHATE MONOBASIC (ANHYDRA [Concomitant]
     Dosage: TRANSFUSION
     Dates: start: 20071214
  4. ESTRACYT [Suspect]
     Dosage: 140-500 MG/DAY
     Route: 065
     Dates: start: 20071204
  5. DEXAMETHASONE [Concomitant]
  6. DEXAMETHASONE [Concomitant]
     Dosage: ON DAY 1 TO 5
  7. BEZAFIBRATE [Concomitant]
     Dosage: DOSE UNIT: 200 MG
     Route: 048
  8. RESMIT [Concomitant]
     Dosage: DOSE UNIT: 5 MG
     Route: 048
  9. ALLOPURINOL [Concomitant]
     Dosage: DOSE UNIT: 100 MG
     Route: 048
  10. DOPAMINE HYDROCHLORIDE [Concomitant]
     Dates: start: 20071212
  11. ESTRACYT [Suspect]
     Dosage: ON DAY 1 TO 5
     Route: 065
  12. NIKORANMART [Concomitant]
     Dosage: DOSE AS USED: 2 TBLS/DAY
     Route: 048
  13. CORINAEL [Concomitant]
     Dosage: DOSE UNIT: 20 MG
     Route: 048
  14. ISOSORBIDE DINITRATE [Concomitant]
     Dosage: DOSE AS USED: 1 SHEET/TIME
  15. DEXAMETHASONE [Concomitant]
     Route: 048
     Dates: start: 20071204, end: 20071208
  16. TAMSULOSIN HCL [Concomitant]
     Route: 048
     Dates: start: 20070911, end: 20071210
  17. DEXAMETHASONE [Concomitant]
     Indication: PROSTATE CANCER
     Dates: start: 20070807
  18. DEXAMETHASONE [Concomitant]
     Route: 048
     Dates: start: 20071031, end: 20071104
  19. VESICARE [Concomitant]
     Route: 048
     Dates: start: 20070911, end: 20071210
  20. ESTRACYT [Suspect]
     Indication: PROSTATE CANCER
     Route: 065
  21. ESTRACYT [Suspect]
     Route: 048
     Dates: start: 20071204, end: 20071208
  22. ASPIRIN [Concomitant]
     Indication: ANTICOAGULANT THERAPY
     Route: 048
     Dates: start: 20071204, end: 20071214
  23. ISOSORBIDE MONONITRATE [Concomitant]
     Dosage: DOSE UNIT: 20 MG
     Route: 048
  24. PLATELETS [Concomitant]
     Indication: PLATELET COUNT DECREASED
     Dates: start: 20071214
  25. TAXOTERE [Suspect]
     Route: 041
     Dates: start: 20071205, end: 20071205
  26. TAXOTERE [Suspect]
     Dosage: ON DAY 2 OF CHEMOTHERAPY REGIMEN
     Route: 065
  27. GRAN [Concomitant]
     Indication: WHITE BLOOD CELL COUNT DECREASED
     Dates: start: 20071211, end: 20071213

REACTIONS (1)
  - RENAL FAILURE ACUTE [None]
